FAERS Safety Report 9529296 (Version 1)
Quarter: 2013Q2

REPORT INFORMATION
  Report Type: Spontaneous
  Country: US (occurrence: None)
  Receive Date: 20130401
  Receipt Date: 20130401
  Transmission Date: 20140414
  Serious: No
  Sender: FDA-Public Use
  Company Number: PHEH2012US018315

PATIENT
  Age: 85 Year
  Sex: Male

DRUGS (1)
  1. EXELON PATCH [Suspect]
     Indication: DEMENTIA ALZHEIMER^S TYPE
     Route: 062

REACTIONS (1)
  - Dementia [None]
